FAERS Safety Report 4952059-0 (Version None)
Quarter: 2006Q1

REPORT INFORMATION
  Report Type: 
  Country: None (occurrence: None)
  Receive Date: 20060127
  Receipt Date: 20050427
  Transmission Date: 20060701
  Serious: Yes (Life-Threatening, Hospitalization, Other)
  Sender: FDA-Public Use
  Company Number: 05-04-0698

PATIENT
  Age: 26 Year
  Sex: Male
  Weight: 116.5744 kg

DRUGS (5)
  1. CLOZAPINE [Suspect]
     Indication: SCHIZOAFFECTIVE DISORDER
     Dosage: 450MG QD, ORAL
     Route: 048
     Dates: start: 20020101, end: 20050422
  2. DEPAKOTE [Concomitant]
  3. PROPRANOLOL [Concomitant]
  4. CLONAZEPAM [Concomitant]
  5. INSULIN (INSULIN) [Concomitant]

REACTIONS (1)
  - DIABETIC KETOACIDOSIS [None]
